FAERS Safety Report 12409965 (Version 2)
Quarter: 2016Q3

REPORT INFORMATION
  Report Type: Spontaneous
  Country: FR (occurrence: FR)
  Receive Date: 20160527
  Receipt Date: 20160831
  Transmission Date: 20161109
  Serious: Yes (Other)
  Sender: FDA-Public Use
  Company Number: FR-BRISTOL-MYERS SQUIBB COMPANY-BMS-2016-040380

PATIENT
  Age: 62 Year
  Sex: Female
  Weight: 107 kg

DRUGS (6)
  1. ORENCIA [Suspect]
     Active Substance: ABATACEPT
     Indication: RHEUMATOID ARTHRITIS
     Dosage: 1000 MG, UNK
     Route: 042
     Dates: start: 200803, end: 201502
  2. SPECIAFOLDINE [Concomitant]
     Active Substance: FOLIC ACID
     Indication: RHEUMATOID ARTHRITIS
     Dosage: 15 MG, QWK
     Route: 048
     Dates: start: 2005, end: 201503
  3. RELPAX [Concomitant]
     Active Substance: ELETRIPTAN HYDROBROMIDE
     Indication: MIGRAINE
     Route: 048
  4. METHOTREXATE. [Suspect]
     Active Substance: METHOTREXATE
     Indication: RHEUMATOID ARTHRITIS
     Dosage: 15 MG, QWK
     Route: 048
     Dates: start: 201512
  5. BI-PROFENID [Concomitant]
     Active Substance: KETOPROFEN
     Indication: PAIN
     Dosage: UNK, QD
     Route: 048
  6. DETENSIEL                          /00802601/ [Concomitant]
     Active Substance: BISOPROLOL FUMARATE
     Indication: HYPERTENSION
     Dosage: UNK, QD
     Route: 048

REACTIONS (3)
  - Uterine cancer [Unknown]
  - Lymphadenectomy [Unknown]
  - Radical hysterectomy [Unknown]

NARRATIVE: CASE EVENT DATE: 20150211
